FAERS Safety Report 7267999-X (Version None)
Quarter: 2011Q1

REPORT INFORMATION
  Report Type: 
  Country: None (occurrence: None)
  Receive Date: 20110201
  Receipt Date: 20110125
  Transmission Date: 20110831
  Serious: Yes (Hospitalization)
  Sender: FDA-Public Use
  Company Number: US-SANOFI-AVENTIS-2010SA034661

PATIENT
  Age: 73 Year
  Sex: Female
  Weight: 91.16 kg

DRUGS (16)
  1. BENAZEPRIL HYDROCHLORIDE [Concomitant]
     Dates: start: 20100303
  2. POTASSIUM [Concomitant]
     Dates: start: 20100301
  3. ZANTAC [Concomitant]
     Dates: start: 20091119
  4. NORVASC [Concomitant]
     Dates: start: 20100322
  5. NOVOLOG [Concomitant]
     Dates: start: 20040101
  6. CLOPIDOGREL BISULFATE [Suspect]
     Indication: ACUTE CORONARY SYNDROME
     Route: 048
     Dates: start: 20100308, end: 20100516
  7. LASIX [Concomitant]
     Dates: start: 20100301
  8. SIMVASTATIN [Concomitant]
  9. VITAMIN E [Concomitant]
  10. ASCORBIC ACID [Concomitant]
  11. PROTON PUMP INHIBITORS [Concomitant]
  12. OSTEO BI-FLEX [Concomitant]
     Dates: start: 20100325
  13. CLOPIDOGREL BISULFATE [Suspect]
     Route: 048
     Dates: start: 20100601
  14. MULTI-VITAMINS [Concomitant]
     Dates: start: 20100330
  15. LANTUS [Concomitant]
     Dates: start: 20100301
  16. IMDUR [Concomitant]
     Dates: start: 20100302

REACTIONS (2)
  - EROSIVE OESOPHAGITIS [None]
  - HAEMATEMESIS [None]
